FAERS Safety Report 24880492 (Version 1)
Quarter: 2025Q1

REPORT INFORMATION
  Report Type: Spontaneous
  Country: GR (occurrence: GR)
  Receive Date: 20250123
  Receipt Date: 20250123
  Transmission Date: 20250408
  Serious: Yes (Hospitalization)
  Sender: EISAI
  Company Number: GR-Eisai-EC-2025-182584

PATIENT
  Age: 60 Year
  Sex: Female

DRUGS (2)
  1. RABEPRAZOLE SODIUM [Suspect]
     Active Substance: RABEPRAZOLE SODIUM
     Indication: Gastrooesophageal reflux disease
     Route: 048
  2. RABEPRAZOLE SODIUM [Suspect]
     Active Substance: RABEPRAZOLE SODIUM
     Route: 048

REACTIONS (1)
  - Tubulointerstitial nephritis [Recovered/Resolved]
